FAERS Safety Report 16912401 (Version 2)
Quarter: 2019Q4

REPORT INFORMATION
  Report Type: Report from Study
  Country: NO (occurrence: NO)
  Receive Date: 20191014
  Receipt Date: 20191212
  Transmission Date: 20200122
  Serious: Yes (Hospitalization, Other)
  Sender: FDA-Public Use
  Company Number: NO-BIOGEN-2019BI00794209

PATIENT
  Age: 66 Year
  Sex: Female

DRUGS (1)
  1. TYSABRI [Suspect]
     Active Substance: NATALIZUMAB
     Indication: MULTIPLE SCLEROSIS
     Route: 065
     Dates: start: 20120926

REACTIONS (2)
  - Hip arthroplasty [Unknown]
  - Osteoarthritis [Recovered/Resolved with Sequelae]

NARRATIVE: CASE EVENT DATE: 20160104
